FAERS Safety Report 4434739-9 (Version None)
Quarter: 2004Q3

REPORT INFORMATION
  Report Type: 
  Country: None (occurrence: None)
  Receive Date: 20040827
  Receipt Date: 20040622
  Transmission Date: 20050211
  Serious: No
  Sender: FDA-Public Use
  Company Number: US-BRISTOL-MYERS SQUIBB COMPANY-12622775

PATIENT
  Age: 47 Year
  Sex: Male

DRUGS (1)
  1. DEFINITY [Suspect]
     Dosage: DOSAGE: ^6CC OF A 1.5CC VIAL IN 8.5CC NS DILUTION^
     Route: 042
     Dates: start: 20040621, end: 20040621

REACTIONS (5)
  - ARTHRALGIA [None]
  - BACK PAIN [None]
  - FLANK PAIN [None]
  - HYPERVENTILATION [None]
  - PAIN IN EXTREMITY [None]
